FAERS Safety Report 23960945 (Version 3)
Quarter: 2025Q2

REPORT INFORMATION
  Report Type: Spontaneous
  Country: US (occurrence: US)
  Receive Date: 20240611
  Receipt Date: 20250516
  Transmission Date: 20250716
  Serious: Yes (Other)
  Sender: AUROBINDO
  Company Number: US-MLMSERVICE-20240530-PI081889-00286-1

PATIENT
  Age: 68 Year
  Sex: Female
  Weight: 53 kg

DRUGS (7)
  1. WARFARIN SODIUM [Interacting]
     Active Substance: WARFARIN SODIUM
     Indication: Deep vein thrombosis
     Dosage: 3.75 MILLIGRAM, ONCE A DAY (HALF OF HER REGULAR DOSE (3.75 MG) FOR 1 DAY, RESUME PRIOR REGIMEN OF 7.
     Route: 065
  2. WARFARIN SODIUM [Interacting]
     Active Substance: WARFARIN SODIUM
     Dosage: 48.75 MILLIGRAM, EVERY WEEK (RESUME PRIOR REGIMEN OF 7.5 MG DAILY EXCEPT 3.75 MG ON FRIDAYS THE DAY
     Route: 065
  3. WARFARIN SODIUM [Interacting]
     Active Substance: WARFARIN SODIUM
     Dosage: UNK UNK, ONCE A DAY (HOLD 1 DOSE OF WARFARIN (15% DOSE REDUCTION))
     Route: 065
  4. WARFARIN SODIUM [Interacting]
     Active Substance: WARFARIN SODIUM
     Dosage: 48.75 MILLIGRAM, EVERY WEEK (7.5 MG DAILY EXCEPT FOR 3.75 MG ON FRIDAYS)
     Route: 065
     Dates: start: 2011
  5. WARFARIN SODIUM [Interacting]
     Active Substance: WARFARIN SODIUM
     Dosage: 45 MILLIGRAM, EVERY WEEK (HOLD 1 DOSE AND REDUCE HER TOTAL WEEKLY DOSE TO 45 MG PER WEEK IN THE FORM
     Route: 065
  6. PAXLOVID [Interacting]
     Active Substance: NIRMATRELVIR\RITONAVIR
     Indication: COVID-19
     Route: 065
  7. OXYGEN [Concomitant]
     Active Substance: OXYGEN
     Indication: Interstitial lung disease
     Route: 065

REACTIONS (3)
  - Anticoagulation drug level above therapeutic [Recovered/Resolved]
  - Drug interaction [Recovered/Resolved]
  - Drug-disease interaction [Recovered/Resolved]
